FAERS Safety Report 15256273 (Version 3)
Quarter: 2018Q4

REPORT INFORMATION
  Report Type: Spontaneous
  Country: US (occurrence: US)
  Receive Date: 20180808
  Receipt Date: 20181204
  Transmission Date: 20190204
  Serious: Yes (Other)
  Sender: FDA-Public Use
  Company Number: US-GLAXOSMITHKLINE-US2018GSK138975

PATIENT
  Age: 75 Year
  Sex: Female

DRUGS (4)
  1. ADVAIR HFA [Suspect]
     Active Substance: FLUTICASONE PROPIONATE\SALMETEROL XINAFOATE
     Indication: PRODUCT USED FOR UNKNOWN INDICATION
  2. ANORO ELLIPTA [Suspect]
     Active Substance: UMECLIDINIUM BROMIDE\VILANTEROL TRIFENATATE
     Indication: CHRONIC OBSTRUCTIVE PULMONARY DISEASE
     Dosage: 1 DF, 1D
     Route: 055
     Dates: start: 2018
  3. SINGULAIR [Suspect]
     Active Substance: MONTELUKAST SODIUM
     Indication: PRODUCT USED FOR UNKNOWN INDICATION
  4. SPIRIVA [Suspect]
     Active Substance: TIOTROPIUM BROMIDE MONOHYDRATE
     Indication: PRODUCT USED FOR UNKNOWN INDICATION
     Route: 055

REACTIONS (9)
  - Nasopharyngitis [Not Recovered/Not Resolved]
  - Ill-defined disorder [Unknown]
  - Influenza [Not Recovered/Not Resolved]
  - Tooth fracture [Unknown]
  - Productive cough [Not Recovered/Not Resolved]
  - Thrombosis [Unknown]
  - Dental caries [Unknown]
  - Chest discomfort [Recovered/Resolved]
  - Bronchitis [Unknown]

NARRATIVE: CASE EVENT DATE: 20180617
